FAERS Safety Report 7538053-4 (Version None)
Quarter: 2011Q2

REPORT INFORMATION
  Report Type: 
  Country: None (occurrence: None)
  Receive Date: 20110609
  Receipt Date: 20110606
  Transmission Date: 20111010
  Serious: Yes (Death, Hospitalization)
  Sender: FDA-Public Use
  Company Number: ZA-PFIZER INC-2011120829

PATIENT
  Age: 11 Year
  Sex: Male

DRUGS (9)
  1. PIPERACILLIN SODIUM [Suspect]
     Indication: LOWER RESPIRATORY TRACT INFECTION
  2. VORICONAZOLE [Suspect]
  3. FLUCONAZOLE [Suspect]
  4. MEROPENEM [Suspect]
  5. AMIKACIN [Suspect]
     Indication: LOWER RESPIRATORY TRACT INFECTION
  6. VANCOMYCIN HCL [Suspect]
  7. DORIPENEM MONOHYDRATE [Suspect]
     Dosage: 400 MG, 3X/DAY
     Route: 041
  8. LINEZOLID [Suspect]
  9. CLOXACILLIN SODIUM [Suspect]

REACTIONS (5)
  - LOWER RESPIRATORY TRACT INFECTION [None]
  - LABORATORY TEST ABNORMAL [None]
  - RENAL IMPAIRMENT [None]
  - DEATH [None]
  - OFF LABEL USE [None]
